FAERS Safety Report 16786728 (Version 1)
Quarter: 2019Q3

REPORT INFORMATION
  Report Type: Spontaneous
  Country: CA (occurrence: CA)
  Receive Date: 20190909
  Receipt Date: 20190909
  Transmission Date: 20191005
  Serious: Yes (Death)
  Sender: FDA-Public Use
  Company Number: PHHY2019CA208553

PATIENT
  Age: 67 Year
  Sex: Male

DRUGS (4)
  1. PREDNISONE. [Suspect]
     Active Substance: PREDNISONE
     Indication: CHOLANGITIS SCLEROSING
     Dosage: 50 MG, QD
     Route: 065
  2. MYCOPHENOLATE MOFETIL. [Suspect]
     Active Substance: MYCOPHENOLATE MOFETIL
     Indication: CHOLANGITIS SCLEROSING
     Route: 065
  3. TACROLIMUS. [Suspect]
     Active Substance: TACROLIMUS
     Indication: CHOLANGITIS SCLEROSING
     Route: 065
  4. METHYLPREDNISOLONE. [Suspect]
     Active Substance: METHYLPREDNISOLONE
     Indication: CHOLANGITIS SCLEROSING
     Route: 042

REACTIONS (5)
  - Hepatic enzyme increased [Fatal]
  - Condition aggravated [Fatal]
  - Product use in unapproved indication [Unknown]
  - Therapeutic response delayed [Unknown]
  - Cholestatic liver injury [Fatal]
